FAERS Safety Report 6304977-9 (Version None)
Quarter: 2009Q3

REPORT INFORMATION
  Report Type: 
  Country: None (occurrence: None)
  Receive Date: 20090811
  Receipt Date: 20090729
  Transmission Date: 20100115
  Serious: Yes (Other)
  Sender: FDA-Public Use
  Company Number: JP-MERCK-0908USA00135B1

PATIENT
  Sex: Female
  Weight: 1 kg

DRUGS (1)
  1. DECADRON [Suspect]
     Route: 064

REACTIONS (12)
  - ATRIOVENTRICULAR BLOCK COMPLETE [None]
  - COAGULOPATHY [None]
  - GENERALISED OEDEMA [None]
  - HEPATIC FIBROSIS [None]
  - HYPEROXALURIA [None]
  - OLIGURIA [None]
  - PULMONARY VALVE INCOMPETENCE [None]
  - RENAL IMPAIRMENT [None]
  - RIGHT VENTRICULAR DYSFUNCTION [None]
  - SMALL FOR DATES BABY [None]
  - TRICUSPID VALVE INCOMPETENCE [None]
  - TRISOMY 21 [None]
